FAERS Safety Report 8581830-1 (Version None)
Quarter: 2012Q3

REPORT INFORMATION
  Report Type: 
  Country: None (occurrence: None)
  Receive Date: 20120727
  Receipt Date: 20120712
  Transmission Date: 20120928
  Serious: Yes (Death, Other)
  Sender: FDA-Public Use
  Company Number: TPA2012A01322

PATIENT
  Age: 76 Year
  Sex: Female

DRUGS (4)
  1. NATEGLINIDE [Concomitant]
  2. GLYBURIDE [Concomitant]
  3. ACTOS [Suspect]
     Indication: TYPE 2 DIABETES MELLITUS
     Dosage: 30 MG, 45 MG
     Dates: start: 20040601, end: 20050201
  4. ACTOS [Suspect]
     Indication: TYPE 2 DIABETES MELLITUS
     Dosage: 30 MG, 45 MG
     Dates: start: 20050301, end: 20110701

REACTIONS (7)
  - INTESTINAL OBSTRUCTION [None]
  - CYSTITIS [None]
  - CEREBROVASCULAR ACCIDENT [None]
  - MYOCARDIAL INFARCTION [None]
  - GLAUCOMA [None]
  - URINARY TRACT INFECTION [None]
  - BLADDER CANCER [None]
